FAERS Safety Report 6930535-9 (Version None)
Quarter: 2010Q3

REPORT INFORMATION
  Report Type: 
  Country: None (occurrence: None)
  Receive Date: 20100818
  Receipt Date: 20100811
  Transmission Date: 20110219
  Serious: Yes (Death)
  Sender: FDA-Public Use
  Company Number: A0875177A

PATIENT
  Age: 86 Year
  Sex: Female

DRUGS (6)
  1. TYKERB [Suspect]
     Indication: BREAST CANCER
     Dosage: 250MG TWICE PER DAY
     Route: 048
     Dates: start: 20080101, end: 20100501
  2. HERCEPTIN [Concomitant]
  3. XELODA [Concomitant]
  4. PLAVIX [Concomitant]
  5. ZOCOR [Concomitant]
  6. LOMOTIL [Concomitant]

REACTIONS (2)
  - ADVERSE EVENT [None]
  - DEATH [None]
